FAERS Safety Report 25899386 (Version 1)
Quarter: 2025Q4

REPORT INFORMATION
  Report Type: Spontaneous
  Country: EU (occurrence: EU)
  Receive Date: 20251009
  Receipt Date: 20251009
  Transmission Date: 20260118
  Serious: Yes (Hospitalization, Other)
  Sender: AUROBINDO
  Company Number: EU-AFSSAPS-RE2025000812

PATIENT
  Age: 71 Year
  Sex: Female

DRUGS (3)
  1. CARBOPLATIN [Suspect]
     Active Substance: CARBOPLATIN
     Indication: Lung adenocarcinoma
     Dosage: UNK
     Route: 042
     Dates: start: 20250620, end: 20250805
  2. KEYTRUDA [Suspect]
     Active Substance: PEMBROLIZUMAB
     Indication: Lung adenocarcinoma
     Dosage: UNK
     Route: 042
     Dates: start: 20250620, end: 20250805
  3. ALIMTA [Suspect]
     Active Substance: PEMETREXED DISODIUM
     Indication: Lung adenocarcinoma
     Dosage: UNK
     Route: 042
     Dates: start: 20250620, end: 20250805

REACTIONS (1)
  - Dermatitis bullous [Not Recovered/Not Resolved]

NARRATIVE: CASE EVENT DATE: 20250731
